FAERS Safety Report 22630258 (Version 2)
Quarter: 2023Q2

REPORT INFORMATION
  Report Type: Report from Study
  Country: NL (occurrence: NL)
  Receive Date: 20230622
  Receipt Date: 20230626
  Transmission Date: 20230722
  Serious: Yes (Other)
  Sender: FDA-Public Use
  Company Number: NL-ABBVIE-18K-114-2417321-00

PATIENT
  Age: 73 Year
  Sex: Female
  Weight: 57 kg

DRUGS (23)
  1. RIVASTIGMINE [Suspect]
     Active Substance: RIVASTIGMINE
     Indication: Cognitive disorder
     Dosage: 9.5 MG, QH
     Route: 058
  2. RIVASTIGMINE [Suspect]
     Active Substance: RIVASTIGMINE
     Dosage: UNK
     Route: 065
  3. CARBIDOPA\LEVODOPA [Suspect]
     Active Substance: CARBIDOPA\LEVODOPA
     Indication: Parkinson^s disease
     Dosage: UNK, (MD 9.4 ML, CD 3.2 ML/HR, ED 3.0 ML,
     Route: 065
  4. CARBIDOPA\LEVODOPA [Suspect]
     Active Substance: CARBIDOPA\LEVODOPA
     Dosage: UNK (DAYPUMP MD: 9.4, CD: 3.2,ED: 3.0,CND: 1.8
  5. CARBIDOPA\LEVODOPA [Suspect]
     Active Substance: CARBIDOPA\LEVODOPA
     Dosage: UNK (MD: 11; CD: 2.8; ED:3.0)
     Route: 065
     Dates: start: 20180626
  6. CARBIDOPA\LEVODOPA [Suspect]
     Active Substance: CARBIDOPA\LEVODOPA
     Dosage: UNK (MD: 9.4 ML, CD: 3.9 ML/HR, ED: 3.5 ML
     Route: 065
  7. CARBIDOPA\LEVODOPA [Suspect]
     Active Substance: CARBIDOPA\LEVODOPA
     Dosage: UNK, (CD 1.6 ML)
     Route: 065
  8. CARBIDOPA\LEVODOPA [Suspect]
     Active Substance: CARBIDOPA\LEVODOPA
     Dosage: UNK, (MD: 9.4 ML, CD: 3.9 ML/HR, ED: 3.5 ML
     Route: 065
  9. CARBIDOPA\LEVODOPA [Suspect]
     Active Substance: CARBIDOPA\LEVODOPA
     Dosage: UNK (MD 9.4 ML, CD 3.2 ML/HR, ED 3.0 ML, CND:2.3
     Route: 065
  10. CARBIDOPA\LEVODOPA [Suspect]
     Active Substance: CARBIDOPA\LEVODOPA
     Dosage: UNK (MD 9.4 ML, CD 3.5 ML/HR, ED 3.0 ML, CND 2.6
     Route: 065
  11. CARBIDOPA\LEVODOPA [Suspect]
     Active Substance: CARBIDOPA\LEVODOPA
     Dosage: UNK, (DAYPUMP MD: 9.4, CD: 3.2,ED: 3.0,CND: 1.8
     Route: 065
  12. CARBIDOPA\LEVODOPA [Suspect]
     Active Substance: CARBIDOPA\LEVODOPA
     Dosage: UNK (MD 9.4 ML, CD 3.2 ML/HR, ED 3.0 ML, CND:2.3
     Route: 065
  13. CARBIDOPA\LEVODOPA [Suspect]
     Active Substance: CARBIDOPA\LEVODOPA
     Dosage: UNK (MD 9.4 ML, CD 3.2 ML/HR, ED 3.0 ML, CND:2.3
     Route: 065
  14. CARBIDOPA\LEVODOPA [Suspect]
     Active Substance: CARBIDOPA\LEVODOPA
     Dosage: UNK (MD 9.4 ML, CD 3.5 ML/HR, ED 3.0 ML, CND2.6
     Route: 065
  15. CARBIDOPA\LEVODOPA [Suspect]
     Active Substance: CARBIDOPA\LEVODOPA
     Dosage: UNK, (MD: 11.0, CD: 2.0, ED: 3.0)
     Route: 065
  16. CARBIDOPA\LEVODOPA [Suspect]
     Active Substance: CARBIDOPA\LEVODOPA
     Dosage: UNK (CD 1.6 ML)
     Route: 065
  17. CARBIDOPA\LEVODOPA [Suspect]
     Active Substance: CARBIDOPA\LEVODOPA
     Dosage: UNK (MD: 11.0, CD: 2.0, ED: 3.0)
     Route: 065
  18. POLYETHYLENE GLYCOLS [Concomitant]
     Active Substance: POLYETHYLENE GLYCOLS
     Indication: Abnormal faeces
     Dosage: UNK
     Route: 065
  19. MOVICOLON [Concomitant]
     Active Substance: POLYETHYLENE GLYCOL 3350\POTASSIUM CHLORIDE\SODIUM BICARBONATE\SODIUM CHLORIDE
     Indication: Bowel movement irregularity
     Dosage: UNK
     Route: 065
  20. MOVICOLON [Concomitant]
     Active Substance: POLYETHYLENE GLYCOL 3350\POTASSIUM CHLORIDE\SODIUM BICARBONATE\SODIUM CHLORIDE
     Indication: Abnormal faeces
     Dosage: UNK UNK, QD
     Route: 065
  21. SINEMET [Concomitant]
     Active Substance: CARBIDOPA\LEVODOPA
     Indication: Product used for unknown indication
     Dosage: UNK
     Route: 065
  22. Laxans [Concomitant]
     Indication: Abnormal faeces
     Dosage: UNK
     Route: 065
  23. RIVASTIGMINE [Concomitant]
     Active Substance: RIVASTIGMINE
     Indication: Cognitive disorder
     Dosage: 9.5 MILLIGRAM, QH
     Route: 003

REACTIONS (64)
  - Hallucination, visual [Not Recovered/Not Resolved]
  - Hallucination [Recovered/Resolved]
  - Parkinson^s disease [Unknown]
  - Hallucination, auditory [Not Recovered/Not Resolved]
  - Dystonia [Not Recovered/Not Resolved]
  - Dyspnoea [Not Recovered/Not Resolved]
  - Mood swings [Recovering/Resolving]
  - Middle insomnia [Not Recovered/Not Resolved]
  - Memory impairment [Not Recovered/Not Resolved]
  - Tension [Not Recovered/Not Resolved]
  - Salivary hypersecretion [Not Recovered/Not Resolved]
  - Stoma site discharge [Recovered/Resolved]
  - Mobility decreased [Not Recovered/Not Resolved]
  - Appetite disorder [Not Recovered/Not Resolved]
  - Dysphagia [Not Recovered/Not Resolved]
  - Feeling abnormal [Not Recovered/Not Resolved]
  - Mood altered [Not Recovered/Not Resolved]
  - Aphasia [Not Recovered/Not Resolved]
  - Nervousness [Not Recovered/Not Resolved]
  - Feeding disorder [Not Recovered/Not Resolved]
  - Bradykinesia [Not Recovered/Not Resolved]
  - Stress [Not Recovered/Not Resolved]
  - Freezing phenomenon [Not Recovered/Not Resolved]
  - Emotional disorder [Not Recovered/Not Resolved]
  - Muscle spasms [Not Recovered/Not Resolved]
  - Panic disorder [Not Recovered/Not Resolved]
  - Abnormal dreams [Not Recovered/Not Resolved]
  - On and off phenomenon [Not Recovered/Not Resolved]
  - Paraesthesia [Not Recovered/Not Resolved]
  - Vitamin B12 deficiency [Not Recovered/Not Resolved]
  - Dysstasia [Not Recovered/Not Resolved]
  - Visual impairment [Not Recovered/Not Resolved]
  - Dyskinesia [Not Recovered/Not Resolved]
  - Unevaluable event [Not Recovered/Not Resolved]
  - Stoma site erythema [Not Recovered/Not Resolved]
  - Stoma site hypergranulation [Unknown]
  - Fear [Unknown]
  - Time perception altered [Not Recovered/Not Resolved]
  - Muscle rigidity [Recovered/Resolved]
  - Fibroma [Not Recovered/Not Resolved]
  - Device issue [Not Recovered/Not Resolved]
  - Abdominal distension [Not Recovered/Not Resolved]
  - Disorientation [Not Recovered/Not Resolved]
  - Mental disorder [Not Recovered/Not Resolved]
  - Depression [Not Recovered/Not Resolved]
  - Anxiety [Not Recovered/Not Resolved]
  - Weight decreased [Recovered/Resolved]
  - Decreased appetite [Recovered/Resolved]
  - Confusional state [Not Recovered/Not Resolved]
  - Agitation [Not Recovered/Not Resolved]
  - Restlessness [Not Recovered/Not Resolved]
  - Aggression [Not Recovered/Not Resolved]
  - Urinary tract infection [Unknown]
  - Malaise [Not Recovered/Not Resolved]
  - Skin irritation [Unknown]
  - Stoma site pain [Not Recovered/Not Resolved]
  - Nightmare [Not Recovered/Not Resolved]
  - Impaired quality of life [Unknown]
  - Loss of personal independence in daily activities [Not Recovered/Not Resolved]
  - Fatigue [Not Recovered/Not Resolved]
  - Extra dose administered [Recovered/Resolved]
  - Therapeutic product effect delayed [Recovered/Resolved]
  - Therapeutic product effect variable [Not Recovered/Not Resolved]
  - Therapeutic product effect incomplete [Recovering/Resolving]

NARRATIVE: CASE EVENT DATE: 20200101
